FAERS Safety Report 8132155-X (Version None)
Quarter: 2012Q1

REPORT INFORMATION
  Report Type: 
  Country: None (occurrence: None)
  Receive Date: 20120213
  Receipt Date: 20120208
  Transmission Date: 20120608
  Serious: No
  Sender: FDA-Public Use
  Company Number: US-PFIZER INC-2012034999

PATIENT
  Sex: Female
  Weight: 86.168 kg

DRUGS (6)
  1. CELEBREX [Concomitant]
     Indication: ARTHRITIS
     Dosage: 200 MG, 1X/DAY
  2. BISOPROLOL FUMARATE AND HYDROCHLOROTHIAZIDE [Concomitant]
     Indication: HYPERTENSION
     Dosage: 10/6.25 MG, 1X/DAY
  3. FUROSEMIDE [Concomitant]
     Indication: HYPERTENSION
  4. LYRICA [Suspect]
     Indication: NEUROPATHY PERIPHERAL
     Dosage: 75 MG, 2X/DAY
     Route: 048
     Dates: start: 20120117
  5. ESTRADIOL [Concomitant]
     Dosage: 2 MG, 1X/DAY
  6. FUROSEMIDE [Concomitant]
     Indication: DEHYDRATION
     Dosage: 40 MG, 1X/DAY

REACTIONS (3)
  - VISION BLURRED [None]
  - DIZZINESS [None]
  - DRY MOUTH [None]
